FAERS Safety Report 8302759-X (Version None)
Quarter: 2012Q2

REPORT INFORMATION
  Report Type: 
  Country: None (occurrence: None)
  Receive Date: 20120420
  Receipt Date: 20110810
  Transmission Date: 20120825
  Serious: No
  Sender: FDA-Public Use
  Company Number: US-PFIZER INC-K201100937

PATIENT
  Sex: Male
  Weight: 83.9 kg

DRUGS (5)
  1. AVINZA [Suspect]
     Indication: PAIN
     Dosage: 30 MG, 1X/DAY
     Route: 048
     Dates: start: 20110807
  2. ZOCOR [Concomitant]
     Indication: BLOOD CHOLESTEROL INCREASED
     Dosage: 20 MG, 1X/DAY
     Route: 048
  3. VERAPAMIL [Concomitant]
     Dosage: 120 MG, 2X/DAY
     Route: 048
  4. PERCOCET [Concomitant]
     Indication: BREAKTHROUGH PAIN
     Dosage: 27.5 MG, AS NEEDED
     Route: 048
  5. SKELAXIN [Concomitant]
     Indication: MUSCULAR WEAKNESS
     Dosage: 800 MG, 2X/DAY
     Route: 048

REACTIONS (1)
  - DELUSION [None]
